FAERS Safety Report 6929929-7 (Version None)
Quarter: 2010Q3

REPORT INFORMATION
  Report Type: 
  Country: None (occurrence: None)
  Receive Date: 20100818
  Receipt Date: 20100805
  Transmission Date: 20110219
  Serious: Yes (Other)
  Sender: FDA-Public Use
  Company Number: PHBS2007JP08764

PATIENT
  Sex: Male
  Weight: 60 kg

DRUGS (20)
  1. GLEEVEC [Suspect]
     Indication: ACUTE LYMPHOCYTIC LEUKAEMIA
     Dosage: 600 MG, QD
     Route: 048
     Dates: start: 20070430, end: 20070520
  2. GLEEVEC [Suspect]
     Dosage: 400 MG DAILY
     Route: 048
     Dates: start: 20080430, end: 20080728
  3. DAUNORUBICIN HYDROCHLORIDE [Suspect]
     Indication: ACUTE LYMPHOCYTIC LEUKAEMIA
     Route: 042
     Dates: start: 20070426, end: 20070428
  4. ENDOXAN [Suspect]
     Indication: ACUTE LYMPHOCYTIC LEUKAEMIA
     Dosage: 2100 MG, QD
     Route: 042
     Dates: start: 20070426, end: 20070426
  5. ONCOVIN [Suspect]
     Indication: ACUTE LYMPHOCYTIC LEUKAEMIA
     Dosage: 2 MG, QD
     Route: 042
     Dates: start: 20070426, end: 20070517
  6. PREDNISOLONE [Suspect]
  7. STEROIDS NOS [Concomitant]
     Route: 065
     Dates: start: 20070419
  8. GRAN [Concomitant]
     Indication: ACUTE LYMPHOCYTIC LEUKAEMIA
     Dosage: 150 UG, QD
     Route: 058
     Dates: start: 20070429, end: 20070511
  9. REMINARON [Concomitant]
     Indication: DISSEMINATED INTRAVASCULAR COAGULATION
     Route: 042
     Dates: start: 20070419, end: 20070504
  10. MINOPHAGEN C [Concomitant]
     Indication: HEPATIC FUNCTION ABNORMAL
     Route: 042
     Dates: start: 20070422, end: 20070504
  11. OMEGACIN [Concomitant]
     Indication: NEUTROPENIA
     Route: 042
     Dates: start: 20070417, end: 20070512
  12. PREDONINE [Concomitant]
     Indication: ACUTE LYMPHOCYTIC LEUKAEMIA
     Route: 048
     Dates: start: 20070419, end: 20070516
  13. NEORAL [Concomitant]
     Indication: HEPATIC FUNCTION ABNORMAL
     Dosage: 100 MG
     Route: 048
     Dates: start: 20080212, end: 20080530
  14. METHOTREXATE [Concomitant]
     Indication: ACUTE LYMPHOCYTIC LEUKAEMIA
     Dosage: 1.75 GRAM
     Route: 041
     Dates: start: 20070614, end: 20070723
  15. METHOTREXATE [Concomitant]
     Dosage: 15 MG
     Dates: start: 20070614, end: 20070723
  16. CYLOCIDE [Concomitant]
     Indication: ACUTE LYMPHOCYTIC LEUKAEMIA
     Dosage: 7G
     Route: 041
     Dates: start: 20070615, end: 20070725
  17. CYLOCIDE [Concomitant]
     Dosage: 40 MG
     Dates: start: 20070614, end: 20070723
  18. SOLU-MEDROL [Concomitant]
     Indication: ACUTE LYMPHOCYTIC LEUKAEMIA
     Dosage: 50 MG
     Route: 041
     Dates: start: 20070615, end: 20070725
  19. ITRIZOLE [Concomitant]
     Indication: HEPATIC FUNCTION ABNORMAL
     Dosage: 100 MG
     Route: 048
     Dates: start: 20080212, end: 20080530
  20. ALOSITOL [Concomitant]
     Indication: HEPATIC FUNCTION ABNORMAL
     Dosage: 100 MG
     Route: 048
     Dates: start: 20080212, end: 20080530

REACTIONS (4)
  - ALLOGENIC BONE MARROW TRANSPLANTATION THERAPY [None]
  - FLATULENCE [None]
  - LEUKAEMIA RECURRENT [None]
  - PNEUMATOSIS INTESTINALIS [None]
